FAERS Safety Report 8482775-8 (Version None)
Quarter: 2012Q3

REPORT INFORMATION
  Report Type: 
  Country: None (occurrence: None)
  Receive Date: 20120702
  Receipt Date: 20120628
  Transmission Date: 20120928
  Serious: Yes (Hospitalization)
  Sender: FDA-Public Use
  Company Number: US-BAYER-2012-057479

PATIENT
  Age: 62 Year
  Sex: Male
  Weight: 83.3 kg

DRUGS (1)
  1. MOXIFLOXACIN [Suspect]
     Dosage: UNK
     Dates: end: 20120515

REACTIONS (1)
  - DEEP VEIN THROMBOSIS [None]
